FAERS Safety Report 18933958 (Version 1)
Quarter: 2021Q1

REPORT INFORMATION
  Report Type: Spontaneous
  Country: US (occurrence: US)
  Receive Date: 20210224
  Receipt Date: 20210224
  Transmission Date: 20210420
  Serious: Yes (Hospitalization)
  Sender: FDA-Public Use
  Company Number: None

PATIENT
  Age: 134 Year
  Sex: Female
  Weight: 58 kg

DRUGS (2)
  1. GIVOSIRAN. [Suspect]
     Active Substance: GIVOSIRAN
     Indication: PORPHYRIA ACUTE
     Dosage: ?          OTHER FREQUENCY:MONTHLY;?
     Route: 058
  2. FLUOXETINE [Suspect]
     Active Substance: FLUOXETINE HYDROCHLORIDE
     Dates: end: 20210131

REACTIONS (7)
  - Decreased appetite [None]
  - Hepatic enzyme increased [None]
  - Nausea [None]
  - Cyclic vomiting syndrome [None]
  - Vomiting [None]
  - Abnormal loss of weight [None]
  - Drug interaction [None]

NARRATIVE: CASE EVENT DATE: 20210127
